FAERS Safety Report 11636584 (Version 1)
Quarter: 2015Q4

REPORT INFORMATION
  Report Type: Spontaneous
  Country: US (occurrence: US)
  Receive Date: 20151016
  Receipt Date: 20151016
  Transmission Date: 20160304
  Serious: Yes (Other)
  Sender: FDA-Public Use
  Company Number: US-CIPLA LTD.-2015US08018

PATIENT

DRUGS (7)
  1. LAMOTRIGINE. [Suspect]
     Active Substance: LAMOTRIGINE
     Indication: EPILEPSY
     Route: 065
  2. ZONISAMIDE. [Suspect]
     Active Substance: ZONISAMIDE
     Indication: EPILEPSY
     Dosage: UNK
     Route: 065
  3. LEVEPSY [Suspect]
     Active Substance: LEVETIRACETAM
     Dosage: 500 MG, BID
     Route: 065
  4. LEVEPSY [Suspect]
     Active Substance: LEVETIRACETAM
     Indication: EPILEPSY
     Dosage: FOR THREE YEARS
     Route: 065
  5. ZONISAMIDE. [Suspect]
     Active Substance: ZONISAMIDE
     Dosage: 100 MG, BID
     Route: 048
  6. ZONISAMIDE. [Suspect]
     Active Substance: ZONISAMIDE
     Dosage: 50 MG, BID
     Route: 048
  7. TOPIRAMATE. [Suspect]
     Active Substance: TOPIRAMATE
     Indication: EPILEPSY
     Route: 065

REACTIONS (9)
  - Rash [Unknown]
  - Seizure [Unknown]
  - Exposure during pregnancy [Unknown]
  - Rash papular [Recovered/Resolved]
  - Migraine [Unknown]
  - Depression [Unknown]
  - Aggression [Unknown]
  - Erythema [Recovered/Resolved]
  - Pruritus [Recovered/Resolved]
